FAERS Safety Report 14880963 (Version 62)
Quarter: 2023Q2

REPORT INFORMATION
  Report Type: Spontaneous
  Country: GB (occurrence: GB)
  Receive Date: 20180511
  Receipt Date: 20230526
  Transmission Date: 20230722
  Serious: Yes (Hospitalization, Other)
  Sender: FDA-Public Use
  Company Number: None

PATIENT
  Age: 86 Year
  Sex: Female

DRUGS (61)
  1. CETIRIZINE [Suspect]
     Active Substance: CETIRIZINE HYDROCHLORIDE
     Indication: Product used for unknown indication
     Dosage: 10 MILLIGRAM, QD (MORNING)
     Route: 048
  2. CETIRIZINE [Suspect]
     Active Substance: CETIRIZINE HYDROCHLORIDE
     Dosage: 62.5 UG, QD (MORNING)
  3. CETIRIZINE [Suspect]
     Active Substance: CETIRIZINE HYDROCHLORIDE
     Dosage: 10 MILLIGRAM, ONCE DAILY (MORNING)
     Route: 048
  4. CETIRIZINE [Suspect]
     Active Substance: CETIRIZINE HYDROCHLORIDE
     Dosage: 1 DOSAGE FORM, ONCE A DAY (MORNING)
  5. IMDUR [Suspect]
     Active Substance: ISOSORBIDE MONONITRATE
     Indication: Product used for unknown indication
     Dosage: 50 MG, (QD) (MORNING); PREFERRED PRODUCT DESCRIPTION: ISOSORBIDE MONONITRATE
     Route: 048
  6. IMDUR [Suspect]
     Active Substance: ISOSORBIDE MONONITRATE
  7. IMDUR [Suspect]
     Active Substance: ISOSORBIDE MONONITRATE
     Dosage: 50 MILLIGRAM, QD
     Route: 048
  8. SIMVASTATIN [Suspect]
     Active Substance: SIMVASTATIN
     Indication: Product used for unknown indication
     Dosage: 40 MG, ONCE DAILY (QD) (NIGHT)
  9. SIMVASTATIN [Suspect]
     Active Substance: SIMVASTATIN
     Dosage: 40 MG, QD (NIGHT), ORAL USE
     Route: 048
  10. SIMVASTATIN [Suspect]
     Active Substance: SIMVASTATIN
     Dosage: 40 MG, QD (NIGHT)
  11. SIMVASTATIN [Suspect]
     Active Substance: SIMVASTATIN
  12. SIMVASTATIN [Suspect]
     Active Substance: SIMVASTATIN
     Dosage: 40 MG, ONCE DAILY (QD)
     Route: 048
  13. BISOPROLOL FUMARATE [Suspect]
     Active Substance: BISOPROLOL FUMARATE
     Indication: Cerebrovascular accident prophylaxis
     Route: 048
  14. BISOPROLOL FUMARATE [Suspect]
     Active Substance: BISOPROLOL FUMARATE
     Dosage: 5 MG, QD,
     Route: 065
     Dates: start: 20180207, end: 20180207
  15. BISOPROLOL FUMARATE [Suspect]
     Active Substance: BISOPROLOL FUMARATE
     Dosage: 5 MG, QD, OFF LABEL USE, ORAL USE
     Dates: end: 20180207
  16. BISOPROLOL FUMARATE [Suspect]
     Active Substance: BISOPROLOL FUMARATE
     Dosage: 5 MG, QD, ORAL
     Route: 048
     Dates: start: 20180207, end: 20180207
  17. BISOPROLOL FUMARATE [Suspect]
     Active Substance: BISOPROLOL FUMARATE
     Dates: start: 20180207, end: 20180207
  18. CANDESARTAN CILEXETIL [Suspect]
     Active Substance: CANDESARTAN CILEXETIL
     Indication: Cerebrovascular accident prophylaxis
     Route: 048
  19. CANDESARTAN CILEXETIL [Suspect]
     Active Substance: CANDESARTAN CILEXETIL
     Dosage: 2MG, QD ORAL USE
     Route: 048
  20. CANDESARTAN CILEXETIL [Suspect]
     Active Substance: CANDESARTAN CILEXETIL
  21. CANDESARTAN CILEXETIL [Suspect]
     Active Substance: CANDESARTAN CILEXETIL
  22. APIXABAN [Suspect]
     Active Substance: APIXABAN
     Indication: Atrial fibrillation
     Dosage: 5 MG, QD
     Route: 042
     Dates: start: 20180207, end: 20180207
  23. APIXABAN [Suspect]
     Active Substance: APIXABAN
     Indication: Cerebrovascular accident prophylaxis
     Dosage: 10 MG (1 DAY)
     Route: 065
     Dates: start: 20180207, end: 20180207
  24. APIXABAN [Suspect]
     Active Substance: APIXABAN
     Route: 048
     Dates: start: 20180207
  25. APIXABAN [Suspect]
     Active Substance: APIXABAN
     Route: 042
     Dates: start: 20180207, end: 20180207
  26. APIXABAN [Suspect]
     Active Substance: APIXABAN
     Dosage: 10 MG (1 DAY), DOSAGE FORM: UNSPECIFIED; OLU: OFF LABEL DOSING FREQUENCY
     Route: 065
     Dates: start: 20180207, end: 20180207
  27. LANSOPRAZOLE [Suspect]
     Active Substance: LANSOPRAZOLE
     Indication: Atrial fibrillation
  28. LANSOPRAZOLE [Suspect]
     Active Substance: LANSOPRAZOLE
     Route: 065
     Dates: start: 20180207, end: 20180207
  29. LANSOPRAZOLE [Suspect]
     Active Substance: LANSOPRAZOLE
     Route: 065
     Dates: end: 20180207
  30. LANSOPRAZOLE [Suspect]
     Active Substance: LANSOPRAZOLE
     Route: 065
     Dates: start: 20180207, end: 20180218
  31. LINAGLIPTIN [Suspect]
     Active Substance: LINAGLIPTIN
     Indication: Product used for unknown indication
  32. LINAGLIPTIN [Suspect]
     Active Substance: LINAGLIPTIN
     Route: 065
  33. LEVOTHYROXINE SODIUM [Suspect]
     Active Substance: LEVOTHYROXINE SODIUM
     Indication: Product used for unknown indication
     Dosage: 1 DF - 50G, ONCE DAILY (QD)125 MICROG, QD (MORNING)
     Route: 065
  34. LEVOTHYROXINE SODIUM [Suspect]
     Active Substance: LEVOTHYROXINE SODIUM
  35. LEVOTHYROXINE SODIUM [Suspect]
     Active Substance: LEVOTHYROXINE SODIUM
  36. LEVOTHYROXINE SODIUM [Suspect]
     Active Substance: LEVOTHYROXINE SODIUM
  37. LEVOTHYROXINE SODIUM [Suspect]
     Active Substance: LEVOTHYROXINE SODIUM
  38. LEVOTHYROXINE SODIUM [Suspect]
     Active Substance: LEVOTHYROXINE SODIUM
  39. LEVOTHYROXINE SODIUM [Suspect]
     Active Substance: LEVOTHYROXINE SODIUM
     Dosage: 30 MILLIGRAM, QD; 30MG/ML
  40. LEVOTHYROXINE SODIUM [Suspect]
     Active Substance: LEVOTHYROXINE SODIUM
  41. DIGOXIN [Suspect]
     Active Substance: DIGOXIN
     Indication: Cerebrovascular accident prophylaxis
     Dosage: 62.5 MICROGRAM, ONCE DAILY (QD) (MORNING)
     Route: 065
  42. DIGOXIN [Suspect]
     Active Substance: DIGOXIN
     Dosage: 62.5 UG, QD/ 62.5 MICROGRAM, ONCE DAILY (QD) (MORNING)
  43. DIGOXIN [Suspect]
     Active Substance: DIGOXIN
     Dosage: 62.5 GRAM, QD
     Route: 065
  44. DIGOXIN [Suspect]
     Active Substance: DIGOXIN
  45. DIGOXIN [Suspect]
     Active Substance: DIGOXIN
  46. DIGOXIN [Suspect]
     Active Substance: DIGOXIN
  47. DIGOXIN [Suspect]
     Active Substance: DIGOXIN
     Dosage: 50 MG, QD (MORNING)
  48. DIGOXIN [Suspect]
     Active Substance: DIGOXIN
  49. CANDESARTAN [Suspect]
     Active Substance: CANDESARTAN
     Indication: Cerebrovascular accident prophylaxis
     Route: 048
  50. CANDESARTAN [Suspect]
     Active Substance: CANDESARTAN
     Route: 048
  51. CANDESARTAN [Suspect]
     Active Substance: CANDESARTAN
     Route: 065
  52. CANDESARTAN [Suspect]
     Active Substance: CANDESARTAN
     Route: 065
  53. CANDESARTAN [Suspect]
     Active Substance: CANDESARTAN
     Route: 048
  54. HYDROCHLOROTHIAZIDE [Suspect]
     Active Substance: HYDROCHLOROTHIAZIDE
     Indication: Product used for unknown indication
     Dosage: 2 MG, QD (MORNING)
     Route: 048
  55. HYDROCHLOROTHIAZIDE [Suspect]
     Active Substance: HYDROCHLOROTHIAZIDE
     Dosage: 2 MG, QD
     Route: 048
  56. HYDROCHLOROTHIAZIDE [Suspect]
     Active Substance: HYDROCHLOROTHIAZIDE
     Dosage: 10 MILLIGRAM, QD 10 MILLIGRAM/ML,
     Route: 048
  57. HYDROCHLOROTHIAZIDE [Suspect]
     Active Substance: HYDROCHLOROTHIAZIDE
     Dosage: 1 DOSAGE FORM, QD (MORNING)
  58. ISOSORBIDE DINITRATE [Suspect]
     Active Substance: ISOSORBIDE DINITRATE
     Indication: Product used for unknown indication
     Route: 048
  59. ISOSORBIDE DINITRATE [Suspect]
     Active Substance: ISOSORBIDE DINITRATE
     Route: 048
  60. ISOSORBIDE DINITRATE [Suspect]
     Active Substance: ISOSORBIDE DINITRATE
     Route: 048
  61. ISOSORBIDE DINITRATE [Suspect]
     Active Substance: ISOSORBIDE DINITRATE
     Route: 048

REACTIONS (6)
  - Subarachnoid haemorrhage [Recovered/Resolved with Sequelae]
  - Off label use [Recovered/Resolved with Sequelae]
  - Intentional product misuse [Unknown]
  - Off label use [Unknown]
  - Intentional product use issue [Unknown]
  - Intentional product misuse [Unknown]

NARRATIVE: CASE EVENT DATE: 20180207
